FAERS Safety Report 8761718 (Version 1)
Quarter: 2012Q4

REPORT INFORMATION
  Report Type: 
  Country: US (occurrence: None)
  Receive Date: 20120830
  Receipt Date: 20120830
  Transmission Date: 20130627
  Serious: Yes (Hospitalization)
  Sender: FDA-Public Use
  Company Number: None

PATIENT
  Sex: Female
  Weight: 63 kg

DRUGS (2)
  1. PACLITAXEL [Suspect]
     Dates: end: 20100514
  2. TRASTUZUMAB [Suspect]
     Dates: end: 20100503

REACTIONS (1)
  - Acute myeloid leukaemia [None]
